FAERS Safety Report 12471883 (Version 1)
Quarter: 2016Q2

REPORT INFORMATION
  Report Type: Spontaneous
  Country: US (occurrence: None)
  Receive Date: 20160615
  Receipt Date: 20160615
  Transmission Date: 20160815
  Serious: Yes (Hospitalization)
  Sender: FDA-Public Use
  Company Number: None

PATIENT
  Age: 88 Year
  Sex: Male
  Weight: 107.4 kg

DRUGS (8)
  1. WARFARIN [Suspect]
     Active Substance: WARFARIN
     Indication: ATRIAL FIBRILLATION
     Dosage: CHRONIC
     Route: 048
  2. LIPODERM [Concomitant]
     Active Substance: BACLOFEN\CYCLOBENZAPRINE\DICLOFENAC\GABAPENTIN\TETRACAINE
  3. TOPROL XL [Concomitant]
     Active Substance: METOPROLOL SUCCINATE
  4. VITAMIN D [Concomitant]
     Active Substance: CHOLECALCIFEROL
  5. THERAGRAN [Concomitant]
     Active Substance: VITAMINS
  6. VITAMIN B12 [Concomitant]
     Active Substance: CYANOCOBALAMIN
  7. W [Concomitant]
  8. DELTASONE [Concomitant]
     Active Substance: PREDNISONE

REACTIONS (4)
  - Muscle haemorrhage [None]
  - Pain [None]
  - International normalised ratio increased [None]
  - Haemorrhagic anaemia [None]

NARRATIVE: CASE EVENT DATE: 20150710
